FAERS Safety Report 4675616-8 (Version None)
Quarter: 2005Q2

REPORT INFORMATION
  Report Type: 
  Country: None (occurrence: None)
  Receive Date: 20050525
  Receipt Date: 20050516
  Transmission Date: 20051028
  Serious: Yes (Hospitalization)
  Sender: FDA-Public Use
  Company Number: WAES 0503GBR00214

PATIENT
  Age: 66 Year
  Sex: Male

DRUGS (15)
  1. VIOXX [Suspect]
     Indication: RHEUMATOID ARTHRITIS
     Dosage: 25 MG/DAILY/ PO
     Route: 048
     Dates: start: 20040408, end: 20041001
  2. ACETAMINOPHEN (+) CODEINE PHOSPH [Concomitant]
  3. AMLODIPINE BESYLATE [Concomitant]
  4. ASPIRIN [Concomitant]
  5. ATENOLOL [Concomitant]
  6. ATORVASTATIN CALCIUM [Concomitant]
  7. BENDROFLUMETHIAZIDE [Concomitant]
  8. CYANOCOBALAMIN [Concomitant]
  9. DIAZEPAM [Concomitant]
  10. NITROGLYCERIN [Concomitant]
  11. POTASSIUM CHLORIDE [Concomitant]
  12. PREDNISOLONE [Concomitant]
  13. QUININE [Concomitant]
  14. SULFASALAZINE [Concomitant]
  15. TRAZODONE HYDROCHLORIDE [Concomitant]

REACTIONS (11)
  - BLOOD POTASSIUM DECREASED [None]
  - CONDITION AGGRAVATED [None]
  - CORONARY ARTERY OCCLUSION [None]
  - HAEMATOCRIT DECREASED [None]
  - HAEMOGLOBIN DECREASED [None]
  - MEAN CELL HAEMOGLOBIN INCREASED [None]
  - MEAN CELL VOLUME INCREASED [None]
  - MYOCARDIAL ISCHAEMIA [None]
  - RED BLOOD CELL COUNT DECREASED [None]
  - VASCULAR GRAFT OCCLUSION [None]
  - VITAMIN B12 DEFICIENCY [None]
